FAERS Safety Report 7030297-3 (Version None)
Quarter: 2010Q4

REPORT INFORMATION
  Report Type: 
  Country: None (occurrence: None)
  Receive Date: 20101006
  Receipt Date: 20100923
  Transmission Date: 20110411
  Serious: No
  Sender: FDA-Public Use
  Company Number: CR-ELI_LILLY_AND_COMPANY-CR201010000252

PATIENT
  Age: 63 Year
  Sex: Female

DRUGS (3)
  1. OLANZAPINE [Suspect]
     Indication: PSYCHOSOMATIC DISEASE
     Dates: start: 20040101, end: 20060101
  2. LUVOX [Concomitant]
     Dates: start: 20040101
  3. APO-NAPRO-NA [Concomitant]
     Dosage: 1500 MG, DAILY (1/D)

REACTIONS (5)
  - ADVERSE EVENT [None]
  - AKATHISIA [None]
  - DYSKINESIA [None]
  - MELAENA [None]
  - PAIN [None]
